FAERS Safety Report 19859849 (Version 1)
Quarter: 2021Q3

REPORT INFORMATION
  Report Type: Spontaneous
  Country: US (occurrence: US)
  Receive Date: 20210920
  Receipt Date: 20210920
  Transmission Date: 20211014
  Serious: Yes (Disabling)
  Sender: FDA-Public Use
  Company Number: None

PATIENT
  Age: 56 Year
  Sex: Female

DRUGS (2)
  1. DESOXIMETASONE 0.25% OINTMENT [Suspect]
     Active Substance: DESOXIMETASONE
     Indication: ECZEMA
     Dosage: ?          OTHER FREQUENCY:1 X OR LESS;?
  2. DESOXIMETASONE 0.25% CREAM [Suspect]
     Active Substance: DESOXIMETASONE
     Indication: ECZEMA
     Dosage: ?          OTHER FREQUENCY:1 OR LESS TIMES;?
     Route: 061

REACTIONS (23)
  - Allergy to chemicals [None]
  - Asthenia [None]
  - Gait disturbance [None]
  - Pruritus [None]
  - Erythema [None]
  - Facial pain [None]
  - Swelling face [None]
  - Chills [None]
  - Weight decreased [None]
  - Nightmare [None]
  - Rash [None]
  - Fatigue [None]
  - Bedridden [None]
  - Wound secretion [None]
  - Food allergy [None]
  - Perfume sensitivity [None]
  - Skin weeping [None]
  - Drug ineffective [None]
  - Pain [None]
  - Steroid withdrawal syndrome [None]
  - Hypersensitivity [None]
  - Insomnia [None]
  - Disturbance in attention [None]

NARRATIVE: CASE EVENT DATE: 20171206
